FAERS Safety Report 15325610 (Version 1)
Quarter: 2018Q3

REPORT INFORMATION
  Report Type: Report from Study
  Country: GB (occurrence: GB)
  Receive Date: 20180828
  Receipt Date: 20180828
  Transmission Date: 20181010
  Serious: Yes (Hospitalization)
  Sender: FDA-Public Use
  Company Number: GB-JNJFOC-20180822298

PATIENT
  Age: 46 Year
  Sex: Male
  Weight: 110 kg

DRUGS (11)
  1. VITAMIN D [Concomitant]
     Active Substance: CHOLECALCIFEROL
     Route: 065
  2. AMOXICILLIN. [Concomitant]
     Active Substance: AMOXICILLIN
     Route: 065
  3. RAMIPRIL. [Concomitant]
     Active Substance: RAMIPRIL
     Route: 065
     Dates: start: 20090217
  4. ALLOPURINOL. [Concomitant]
     Active Substance: ALLOPURINOL
     Route: 065
     Dates: start: 20100316
  5. OMEPRAZOLE. [Concomitant]
     Active Substance: OMEPRAZOLE
     Route: 065
     Dates: start: 20090217
  6. COLCHICINE. [Concomitant]
     Active Substance: COLCHICINE
     Route: 065
     Dates: start: 20100316
  7. DIHYDROCODEINE [Concomitant]
     Active Substance: DIHYDROCODEINE
     Route: 065
  8. VITAMIN B [Concomitant]
     Active Substance: VITAMIN B
     Route: 065
     Dates: start: 20090217
  9. THIAMINE HYDROCHLORIDE. [Concomitant]
     Active Substance: THIAMINE HYDROCHLORIDE
     Route: 065
     Dates: start: 20100115
  10. STELARA [Suspect]
     Active Substance: USTEKINUMAB
     Indication: PSORIASIS
     Route: 058
     Dates: start: 20150914
  11. ALCOHOL. [Suspect]
     Active Substance: ALCOHOL
     Indication: PRODUCT USED FOR UNKNOWN INDICATION
     Route: 065

REACTIONS (1)
  - Alcoholic liver disease [Recovered/Resolved]

NARRATIVE: CASE EVENT DATE: 20170214
